FAERS Safety Report 7937625-2 (Version None)
Quarter: 2011Q4

REPORT INFORMATION
  Report Type: 
  Country: None (occurrence: None)
  Receive Date: 20111123
  Receipt Date: 20111018
  Transmission Date: 20120403
  Serious: No
  Sender: FDA-Public Use
  Company Number: US-BAYER-2011-101854

PATIENT
  Age: 64 Year
  Sex: Male

DRUGS (5)
  1. LEVITRA [Suspect]
     Indication: ERECTILE DYSFUNCTION
     Dosage: 10 MG, QD
  2. LISINOPRIL [Concomitant]
  3. CIALIS [Concomitant]
  4. VIAGRA [Concomitant]
  5. MELOXICAM [Concomitant]

REACTIONS (1)
  - DRUG INEFFECTIVE [None]
